FAERS Safety Report 24756771 (Version 2)
Quarter: 2025Q1

REPORT INFORMATION
  Report Type: Spontaneous
  Country: US (occurrence: US)
  Receive Date: 20241220
  Receipt Date: 20250103
  Transmission Date: 20250409
  Serious: No
  Sender: APOTEX
  Company Number: US-APOTEX-2024AP019086

PATIENT
  Sex: Male

DRUGS (2)
  1. IPRATROPIUM BROMIDE [Suspect]
     Active Substance: IPRATROPIUM BROMIDE
     Indication: Product used for unknown indication
     Dosage: 4 DOSAGE FORM, BID
     Route: 045
     Dates: start: 202411
  2. IPRATROPIUM BROMIDE [Suspect]
     Active Substance: IPRATROPIUM BROMIDE
     Dosage: 4 DOSAGE FORM, BID
     Route: 045
     Dates: start: 202411

REACTIONS (2)
  - Product dose omission issue [Unknown]
  - Product leakage [Unknown]

NARRATIVE: CASE EVENT DATE: 20241101
